FAERS Safety Report 23419993 (Version 1)
Quarter: 2024Q1

REPORT INFORMATION
  Report Type: Spontaneous
  Country: US (occurrence: None)
  Receive Date: 20240119
  Receipt Date: 20240119
  Transmission Date: 20240410
  Serious: No
  Sender: FDA-Public Use
  Company Number: 2024A013468

PATIENT
  Age: 36 Year
  Sex: Female

DRUGS (1)
  1. TEZSPIRE [Suspect]
     Active Substance: TEZEPELUMAB-EKKO
     Dates: start: 2023

REACTIONS (7)
  - Oropharyngeal discomfort [Not Recovered/Not Resolved]
  - Dysphonia [Unknown]
  - Neuropathy peripheral [Unknown]
  - Tendon pain [Not Recovered/Not Resolved]
  - Asthma [Not Recovered/Not Resolved]
  - Gait disturbance [Unknown]
  - Inappropriate schedule of product administration [Unknown]

NARRATIVE: CASE EVENT DATE: 20230101
